FAERS Safety Report 5726205-5 (Version None)
Quarter: 2008Q2

REPORT INFORMATION
  Report Type: 
  Country: None (occurrence: None)
  Receive Date: 20080502
  Receipt Date: 20080422
  Transmission Date: 20081010
  Serious: Yes (Other)
  Sender: FDA-Public Use
  Company Number: HQWYE987317JUL06

PATIENT
  Sex: Female

DRUGS (6)
  1. PREMPRO [Suspect]
  2. ESTRADIOL [Suspect]
  3. MEDROXYPROGESTERONE ACETATE [Suspect]
  4. ESTRACE [Suspect]
  5. PREMARIN [Suspect]
  6. PROVERA [Suspect]

REACTIONS (1)
  - CONTRALATERAL BREAST CANCER [None]
